FAERS Safety Report 22319631 (Version 1)
Quarter: 2023Q2

REPORT INFORMATION
  Report Type: Spontaneous
  Country: US (occurrence: US)
  Receive Date: 20230515
  Receipt Date: 20230515
  Transmission Date: 20230722
  Serious: Yes (Life-Threatening, Hospitalization)
  Sender: FDA-Public Use
  Company Number: US-MYLANLABS-2023M1049398

PATIENT
  Age: 42 Year
  Sex: Male

DRUGS (4)
  1. DILTIAZEM [Suspect]
     Active Substance: DILTIAZEM
     Indication: Hypertension
     Dosage: UNK, DRIP
     Route: 042
  2. DILTIAZEM [Suspect]
     Active Substance: DILTIAZEM
     Indication: Atrial fibrillation
  3. METOPROLOL [Suspect]
     Active Substance: METOPROLOL
     Indication: Thyrotoxic crisis
     Dosage: UNK
     Route: 042
  4. METOPROLOL [Suspect]
     Active Substance: METOPROLOL
     Indication: Tachycardia

REACTIONS (5)
  - Circulatory collapse [Recovering/Resolving]
  - Acute respiratory failure [Recovering/Resolving]
  - Cardiogenic shock [Recovering/Resolving]
  - Off label use [Unknown]
  - Drug ineffective [Unknown]
